FAERS Safety Report 5912520-9 (Version None)
Quarter: 2008Q4

REPORT INFORMATION
  Report Type: 
  Country: None (occurrence: None)
  Receive Date: 20081006
  Receipt Date: 20080924
  Transmission Date: 20090506
  Serious: Yes (Death)
  Sender: FDA-Public Use
  Company Number: 2008-03609

PATIENT

DRUGS (2)
  1. VELCADE [Suspect]
     Indication: MULTIPLE MYELOMA
     Dosage: 1.3 MG/M2, IV BOLUS
     Route: 040
  2. DOXORUBICIN HCL [Suspect]
     Dosage: 30 MG/M2, INTRAVENOUS
     Route: 042

REACTIONS (1)
  - ADVERSE EVENT [None]
